FAERS Safety Report 8308379-5 (Version None)
Quarter: 2012Q2

REPORT INFORMATION
  Report Type: 
  Country: None (occurrence: None)
  Receive Date: 20120424
  Receipt Date: 20120411
  Transmission Date: 20120825
  Serious: Yes (Death)
  Sender: FDA-Public Use
  Company Number: US-WATSON-2012-06402

PATIENT
  Sex: Female
  Weight: 113.4 kg

DRUGS (1)
  1. CRINONE [Suspect]
     Indication: FOETAL DEATH
     Dosage: 1 APPLICATOR DAILY
     Route: 067
     Dates: start: 20120403, end: 20120410

REACTIONS (1)
  - FOETAL DEATH [None]
